FAERS Safety Report 25497999 (Version 1)
Quarter: 2025Q3

REPORT INFORMATION
  Report Type: Report from Study
  Country: CA (occurrence: CA)
  Receive Date: 20250701
  Receipt Date: 20250701
  Transmission Date: 20251021
  Serious: Yes (Disabling, Other)
  Sender: SANDOZ
  Company Number: CA-SANDOZ-SDZ2025CA044879

PATIENT
  Age: 56 Year
  Sex: Female

DRUGS (1)
  1. JUBBONTI [Suspect]
     Active Substance: DENOSUMAB-BBDZ
     Indication: Product used for unknown indication
     Route: 058
     Dates: start: 202412, end: 202501

REACTIONS (1)
  - Sudden hearing loss [Unknown]

NARRATIVE: CASE EVENT DATE: 20241201
